FAERS Safety Report 15360656 (Version 4)
Quarter: 2018Q4

REPORT INFORMATION
  Report Type: Report from Study
  Country: TW (occurrence: TW)
  Receive Date: 20180907
  Receipt Date: 20181017
  Transmission Date: 20190204
  Serious: Yes (Hospitalization)
  Sender: FDA-Public Use
  Company Number: TW-ROCHE-2180037

PATIENT
  Age: 67 Year
  Sex: Female
  Weight: 51.5 kg

DRUGS (10)
  1. ABRAXANE [Suspect]
     Active Substance: PACLITAXEL
     Indication: TRIPLE NEGATIVE BREAST CANCER
     Dosage: TOTAL DOSE OF LAST ADMINISTRATION: 185 MG
     Route: 042
     Dates: start: 20180528, end: 20180627
  2. IMOLEX [Concomitant]
     Indication: DIARRHOEA
     Route: 048
     Dates: start: 20180620
  3. ATEZOLIZUMAB. [Suspect]
     Active Substance: ATEZOLIZUMAB
     Indication: TRIPLE NEGATIVE BREAST CANCER
     Route: 042
     Dates: start: 20180528, end: 20180712
  4. CARBOPLATIN. [Suspect]
     Active Substance: CARBOPLATIN
     Indication: TRIPLE NEGATIVE BREAST CANCER
     Dosage: TOTAL DOSE OF LAST ADMINISTRATION: 153 MG?AUC 2
     Route: 042
     Dates: start: 20180528, end: 20180718
  5. SMECTA [Concomitant]
     Active Substance: MONTMORILLONITE
     Route: 048
     Dates: start: 20180516, end: 20180517
  6. CEPHAZOLIN SODIUM [Concomitant]
     Active Substance: CEFAZOLIN SODIUM
     Indication: PROPHYLAXIS
     Route: 042
     Dates: start: 20180515, end: 20180515
  7. ACETAMINOPHEN. [Concomitant]
     Active Substance: ACETAMINOPHEN
     Indication: PROPHYLAXIS
     Route: 048
     Dates: start: 20180516, end: 20180519
  8. MGO2 [Concomitant]
     Indication: PROPHYLAXIS
     Route: 048
     Dates: start: 20180515, end: 20180519
  9. METOCLOPRAMIDE HCL [Concomitant]
     Active Substance: METOCLOPRAMIDE HYDROCHLORIDE
     Indication: PROPHYLAXIS
     Route: 048
     Dates: start: 20180530
  10. KYTRIL [Concomitant]
     Active Substance: GRANISETRON HYDROCHLORIDE
     Indication: PREMEDICATION
     Route: 042
     Dates: start: 20180530

REACTIONS (1)
  - Myocarditis [Not Recovered/Not Resolved]

NARRATIVE: CASE EVENT DATE: 20180829
